FAERS Safety Report 6029479-9 (Version None)
Quarter: 2009Q1

REPORT INFORMATION
  Report Type: 
  Country: None (occurrence: None)
  Receive Date: 20090105
  Receipt Date: 20090105
  Transmission Date: 20090719
  Serious: Yes (Other)
  Sender: FDA-Public Use
  Company Number: None

PATIENT
  Sex: Female
  Weight: 63.9572 kg

DRUGS (2)
  1. 3,4 DIAMINOPYRIDINE (3,4-DAP) (JACOBUS PHARMACEUTICAL) (AMIFAMPRIDINE) [Suspect]
     Indication: MUSCULAR WEAKNESS
     Dosage: 20 MG TID, ORAL
     Route: 048
     Dates: start: 20060501
  2. MESTINON [Concomitant]

REACTIONS (4)
  - ABORTION INDUCED [None]
  - DRUG EXPOSURE DURING PREGNANCY [None]
  - FEELING ABNORMAL [None]
  - PREGNANCY [None]
